FAERS Safety Report 8317634-4 (Version None)
Quarter: 2012Q2

REPORT INFORMATION
  Report Type: 
  Country: None (occurrence: None)
  Receive Date: 20120427
  Receipt Date: 20110816
  Transmission Date: 20120825
  Serious: No
  Sender: FDA-Public Use
  Company Number: US-GLAXOSMITHKLINE-A0941234A

PATIENT
  Age: 63 Year
  Sex: Male

DRUGS (5)
  1. ONDANSETRON [Suspect]
     Indication: PSORIASIS
     Dosage: 4MG TWICE PER DAY
     Route: 048
     Dates: start: 20110124, end: 20110207
  2. METFORMIN HCL [Concomitant]
  3. PRAZOSIN HCL [Concomitant]
  4. ZOFRAN [Suspect]
     Indication: PROPHYLAXIS OF NAUSEA AND VOMITING
     Dosage: 4MG TWICE PER DAY
     Route: 042
     Dates: start: 20110105, end: 20110106
  5. AMBIEN [Concomitant]

REACTIONS (3)
  - OFF LABEL USE [None]
  - THERAPEUTIC RESPONSE UNEXPECTED [None]
  - CONSTIPATION [None]
